FAERS Safety Report 15696616 (Version 1)
Quarter: 2018Q4

REPORT INFORMATION
  Report Type: Spontaneous
  Country: US (occurrence: US)
  Receive Date: 20181206
  Receipt Date: 20181206
  Transmission Date: 20190205
  Serious: Yes (Other)
  Sender: FDA-Public Use
  Company Number: US-SUPERNUS PHARMACEUTICALS, INC.-2018SUP00242

PATIENT
  Age: 38 Year
  Sex: Female

DRUGS (5)
  1. DEPAKOTE [Concomitant]
     Active Substance: DIVALPROEX SODIUM
     Dosage: 1500 MG, 1X/DAY
  2. OXTELLAR XR [Suspect]
     Active Substance: OXCARBAZEPINE
     Indication: GENERALISED TONIC-CLONIC SEIZURE
  3. SALT TABLETS [Concomitant]
     Active Substance: SODIUM CHLORIDE
     Dosage: 2 G, 1X/DAY
  4. OXTELLAR XR [Suspect]
     Active Substance: OXCARBAZEPINE
     Indication: FOCAL DYSCOGNITIVE SEIZURES
  5. OXTELLAR XR [Suspect]
     Active Substance: OXCARBAZEPINE
     Indication: SIMPLE PARTIAL SEIZURES
     Dosage: 1200 MG, 1X/DAY ON AN EMPTY STOMACH
     Dates: start: 20180601

REACTIONS (1)
  - Generalised tonic-clonic seizure [Unknown]

NARRATIVE: CASE EVENT DATE: 2018
